FAERS Safety Report 5239418-6 (Version None)
Quarter: 2007Q1

REPORT INFORMATION
  Report Type: 
  Country: None (occurrence: None)
  Receive Date: 20070214
  Receipt Date: 20070214
  Transmission Date: 20070707
  Serious: Yes (Hospitalization)
  Sender: FDA-Public Use
  Company Number: None

PATIENT
  Age: 59 Year
  Sex: Male
  Weight: 141.8 kg

DRUGS (18)
  1. ROSIGLITAZONE [Suspect]
     Indication: DIABETES MELLITUS
     Dosage: 4 MG DAILY 1/06  8 MG 07/06
     Dates: start: 20060701, end: 20061020
  2. ROSIGLITAZONE [Suspect]
     Indication: DIABETES MELLITUS
     Dosage: 4 MG DAILY 1/06  8 MG 07/06
     Dates: start: 20060101
  3. INSULIN SYRG [Concomitant]
  4. ACCU-CHEK COMFORT CV (GLUCOSE) [Concomitant]
  5. FUROSEMIDE [Concomitant]
  6. INSULIN NOVOLIN [Concomitant]
  7. VITAMIN B COMPLEX CAP [Concomitant]
  8. METOPROLOL TARTRATE [Concomitant]
  9. SIMVASTATIN [Concomitant]
  10. ALCOHOL PREP PAD [Concomitant]
  11. CLONIDINE HCL [Concomitant]
  12. FENTANYL [Concomitant]
  13. OXYCODONE HCL/APAP [Concomitant]
  14. ASPIRIN [Concomitant]
  15. LISINOPRIL [Concomitant]
  16. GEMFIBROZIL [Concomitant]
  17. TERAZOSIN HCL [Concomitant]
  18. SENNOSIDES [Concomitant]

REACTIONS (2)
  - CARDIAC FAILURE CONGESTIVE [None]
  - WEIGHT INCREASED [None]
